FAERS Safety Report 9440726 (Version 1)
Quarter: 2013Q3

REPORT INFORMATION
  Report Type: Spontaneous
  Country: IT (occurrence: IT)
  Receive Date: 20130805
  Receipt Date: 20130805
  Transmission Date: 20140515
  Serious: Yes (Other)
  Sender: FDA-Public Use
  Company Number: IT-TEVA-421392ISR

PATIENT
  Age: 79 Year
  Sex: Male

DRUGS (1)
  1. CARBOPLATIN [Suspect]
     Indication: UNDIFFERENTIATED NASOPHARYNGEAL CARCINOMA
     Dosage: 112 MILLIGRAM DAILY;
     Route: 042
     Dates: start: 20130701, end: 20130701

REACTIONS (1)
  - Dyspnoea [Recovered/Resolved]
